FAERS Safety Report 6140758-7 (Version None)
Quarter: 2009Q2

REPORT INFORMATION
  Report Type: 
  Country: None (occurrence: None)
  Receive Date: 20090402
  Receipt Date: 20090327
  Transmission Date: 20091009
  Serious: Yes (Other)
  Sender: FDA-Public Use
  Company Number: PHHY2009JP11758

PATIENT
  Age: 78 Year
  Sex: Male

DRUGS (3)
  1. ZOMETA [Suspect]
     Indication: METASTASES TO BONE
     Dosage: UNK
     Route: 042
     Dates: start: 20071001, end: 20081001
  2. ZOMETA [Suspect]
     Indication: METASTASES TO LUNG
  3. INTERFERON BETA [Concomitant]
     Dosage: UNK
     Route: 042
     Dates: start: 20060101

REACTIONS (3)
  - DENTAL CARIES [None]
  - OSTEOMYELITIS [None]
  - TOOTH EXTRACTION [None]
